FAERS Safety Report 22235537 (Version 2)
Quarter: 2023Q2

REPORT INFORMATION
  Report Type: Spontaneous
  Country: NL (occurrence: NL)
  Receive Date: 20230420
  Receipt Date: 20230530
  Transmission Date: 20230722
  Serious: Yes (Life-Threatening)
  Sender: FDA-Public Use
  Company Number: None

PATIENT
  Sex: Male
  Weight: 75 kg

DRUGS (2)
  1. CONCERTA [Suspect]
     Active Substance: METHYLPHENIDATE HYDROCHLORIDE
     Indication: Attention deficit hyperactivity disorder
     Dosage: 1X PER DAY 1 PIECE
     Route: 065
     Dates: start: 20230225
  2. CYTISINICLINE [Suspect]
     Active Substance: CYTISINICLINE
     Indication: Smoking cessation therapy
     Dosage: START WITH 6 PER DAY, THEN PHASE OUT
     Route: 065
     Dates: start: 20230322, end: 20230401

REACTIONS (3)
  - Therapeutic product effect decreased [Recovered/Resolved]
  - Suicidal ideation [Recovered/Resolved]
  - Depressed mood [Recovered/Resolved]
